FAERS Safety Report 18427670 (Version 1)
Quarter: 2020Q4

REPORT INFORMATION
  Report Type: Spontaneous
  Country: US (occurrence: US)
  Receive Date: 20201026
  Receipt Date: 20201026
  Transmission Date: 20210114
  Serious: No
  Sender: FDA-Public Use
  Company Number: US-GLAXOSMITHKLINE-US2020207152

PATIENT
  Age: 37 Year
  Sex: Male

DRUGS (1)
  1. NICORETTE [Suspect]
     Active Substance: NICOTINE
     Indication: SMOKING CESSATION THERAPY
     Dosage: UNK

REACTIONS (5)
  - Alopecia [Unknown]
  - Tinnitus [Not Recovered/Not Resolved]
  - Therapeutic product effect variable [Unknown]
  - Hypoacusis [Unknown]
  - Insomnia [Unknown]
